FAERS Safety Report 11273023 (Version 1)
Quarter: 2015Q3

REPORT INFORMATION
  Report Type: Spontaneous
  Country: US (occurrence: None)
  Receive Date: 20150714
  Receipt Date: 20150714
  Transmission Date: 20151125
  Serious: Yes (Other)
  Sender: FDA-Public Use
  Company Number: None

PATIENT
  Age: 60 Year
  Sex: Female
  Weight: 73.94 kg

DRUGS (4)
  1. BRACES [Concomitant]
  2. CALCIUM POLYCARBOPHIL [Concomitant]
     Active Substance: CALCIUM POLYCARBOPHIL
  3. TRAMADOL HYDROCHLORIDE. [Suspect]
     Active Substance: TRAMADOL HYDROCHLORIDE
     Indication: CARPAL TUNNEL SYNDROME
     Route: 048
  4. VICODIN [Concomitant]
     Active Substance: ACETAMINOPHEN\HYDROCODONE BITARTRATE

REACTIONS (4)
  - Impaired work ability [None]
  - Feeling abnormal [None]
  - Haematochezia [None]
  - Faeces discoloured [None]

NARRATIVE: CASE EVENT DATE: 20150710
